FAERS Safety Report 10451613 (Version 2)
Quarter: 2014Q4

REPORT INFORMATION
  Report Type: Spontaneous
  Country: US (occurrence: US)
  Receive Date: 20140914
  Receipt Date: 20141022
  Transmission Date: 20150528
  Serious: No
  Sender: FDA-Public Use
  Company Number: US-ROCHE-1461772

PATIENT
  Sex: Male

DRUGS (1)
  1. PULMOZYME [Suspect]
     Active Substance: DORNASE ALFA
     Indication: PULMONARY FIBROSIS
     Dosage: DOSE BASED ON WEIGHT
     Route: 065
     Dates: start: 201401

REACTIONS (1)
  - Bronchitis [Unknown]
